FAERS Safety Report 16794204 (Version 5)
Quarter: 2020Q4

REPORT INFORMATION
  Report Type: Report from Study
  Country: None (occurrence: NL)
  Receive Date: 20190911
  Receipt Date: 20201112
  Transmission Date: 20210113
  Serious: Yes (Disabling, Other)
  Sender: FDA-Public Use
  Company Number: NL-ABBVIE-17K-114-1999387-00

PATIENT
  Age: 82 Year
  Sex: Female
  Weight: 52.5 kg

DRUGS (5)
  1. DUODOPA [Suspect]
     Active Substance: CARBIDOPA\LEVODOPA
  2. DUODOPA [Suspect]
     Active Substance: CARBIDOPA\LEVODOPA
     Indication: PARKINSON^S DISEASE
     Dosage: MD: 3.8 ML, CD: 2.2 ML/HR, ED: 1.2 ML, REMAINS AT 16 HOURS
     Route: 050
     Dates: start: 20120704
  3. MIRTAZAPINE. [Concomitant]
     Active Substance: MIRTAZAPINE
     Indication: PRODUCT USED FOR UNKNOWN INDICATION
  4. MOVICOLON [Concomitant]
     Active Substance: POLYETHYLENE GLYCOL 3350\POTASSIUM CHLORIDE\SODIUM BICARBONATE\SODIUM CHLORIDE
     Indication: ABNORMAL FAECES
  5. MAGNESIUM [Concomitant]
     Active Substance: MAGNESIUM
     Indication: ABNORMAL FAECES
     Route: 048

REACTIONS (48)
  - Visual acuity reduced [Unknown]
  - Pulpitis dental [Recovered/Resolved]
  - Abnormal faeces [Recovered/Resolved]
  - Hypogeusia [Not Recovered/Not Resolved]
  - General physical health deterioration [Not Recovered/Not Resolved]
  - Abnormal dreams [Not Recovered/Not Resolved]
  - Fatigue [Not Recovered/Not Resolved]
  - Abdominal distension [Not Recovered/Not Resolved]
  - Muscular weakness [Recovered/Resolved]
  - Medical device site dryness [Unknown]
  - Visual impairment [Not Recovered/Not Resolved]
  - Fall [Recovered/Resolved]
  - Stoma site irritation [Recovered/Resolved]
  - Wrong technique in device usage process [Not Recovered/Not Resolved]
  - Hypophagia [Recovered/Resolved]
  - Toothache [Unknown]
  - Feeling abnormal [Not Recovered/Not Resolved]
  - Decreased appetite [Recovered/Resolved]
  - Sleep disorder [Recovered/Resolved]
  - Dysphagia [Not Recovered/Not Resolved]
  - Stoma site discomfort [Recovered/Resolved]
  - Tension [Not Recovered/Not Resolved]
  - Mastication disorder [Not Recovered/Not Resolved]
  - Fall [Not Recovered/Not Resolved]
  - Malaise [Not Recovered/Not Resolved]
  - Extra dose administered [Unknown]
  - Stress [Not Recovered/Not Resolved]
  - Dyskinesia [Recovered/Resolved]
  - Psychiatric symptom [Not Recovered/Not Resolved]
  - Memory impairment [Recovered/Resolved]
  - Balance disorder [Not Recovered/Not Resolved]
  - Mobility decreased [Not Recovered/Not Resolved]
  - Discomfort [Not Recovered/Not Resolved]
  - Weight increased [Recovered/Resolved]
  - Dyskinesia [Not Recovered/Not Resolved]
  - Poor quality sleep [Not Recovered/Not Resolved]
  - Dyspnoea [Not Recovered/Not Resolved]
  - Bradykinesia [Not Recovered/Not Resolved]
  - On and off phenomenon [Unknown]
  - Constipation [Recovered/Resolved]
  - Visual impairment [Not Recovered/Not Resolved]
  - Stomatitis [Not Recovered/Not Resolved]
  - Dyschezia [Recovered/Resolved]
  - Contusion [Not Recovered/Not Resolved]
  - Fine motor skill dysfunction [Not Recovered/Not Resolved]
  - Muscle rigidity [Not Recovered/Not Resolved]
  - Dizziness [Not Recovered/Not Resolved]
  - Freezing phenomenon [Not Recovered/Not Resolved]

NARRATIVE: CASE EVENT DATE: 201912
